FAERS Safety Report 8265183-4 (Version None)
Quarter: 2012Q2

REPORT INFORMATION
  Report Type: 
  Country: None (occurrence: None)
  Receive Date: 20120406
  Receipt Date: 20120322
  Transmission Date: 20120825
  Serious: Yes (Hospitalization)
  Sender: FDA-Public Use
  Company Number: US-ROCHE-1052557

PATIENT
  Age: 61 Year
  Sex: Female

DRUGS (1)
  1. KLONOPIN [Suspect]
     Indication: PANIC ATTACK
     Route: 048

REACTIONS (2)
  - WITHDRAWAL SYNDROME [None]
  - PANIC ATTACK [None]
